FAERS Safety Report 11097177 (Version 1)
Quarter: 2015Q2

REPORT INFORMATION
  Report Type: Spontaneous
  Country: CH (occurrence: GB)
  Receive Date: 20150507
  Receipt Date: 20150507
  Transmission Date: 20150821
  Serious: Yes (Hospitalization)
  Sender: FDA-Public Use
  Company Number: CH-LPDUSPRD-20140666

PATIENT
  Age: 65 Year
  Sex: Male
  Weight: 112 kg

DRUGS (11)
  1. SOLIFENACIN SUCCINATE [Concomitant]
     Active Substance: SOLIFENACIN SUCCINATE
     Dosage: 10 MG (10 MG IN THE MORNING)
     Route: 048
  2. SERTRALINE [Concomitant]
     Active Substance: SERTRALINE HYDROCHLORIDE
     Dosage: 150 MG (150 MG IN THE MORNING)
     Route: 048
  3. GABAPENTIN. [Concomitant]
     Active Substance: GABAPENTIN
     Dosage: 900 MG (300 MG, 3 IN 1 DAY)
     Route: 048
  4. METFORMIN [Concomitant]
     Active Substance: METFORMIN HYDROCHLORIDE
     Dosage: 1000 MG (500 MG, 2 IN1DAY)
     Route: 048
  5. FERINJECT [Suspect]
     Active Substance: FERRIC CARBOXYMALTOSE
     Dosage: (1000 MG, STAT DOSE)
     Route: 041
     Dates: start: 20140819, end: 20140819
  6. CLOPIDOGREL [Concomitant]
     Active Substance: CLOPIDOGREL BISULFATE
     Dosage: 75 MG IN THE MORNING
     Route: 048
  7. OMEPRAZOLE. [Concomitant]
     Active Substance: OMEPRAZOLE
     Dosage: 20 MG (20 MG IN THE MORNING)
     Route: 048
  8. ZEBETA [Concomitant]
     Active Substance: BISOPROLOL FUMARATE
     Dosage: 1500 MG (500 MG, 3 IN 1 D)
     Route: 048
  9. AMITRIPTYLINE [Concomitant]
     Active Substance: AMITRIPTYLINE
     Dosage: 10 MG, AT NIGHT
     Route: 048
  10. PARACETAMOL [Concomitant]
     Active Substance: ACETAMINOPHEN
     Dosage: 4000 MG (1000MG, 4 IN 1 DAY)
     Route: 048
  11. GLYCERYL TRINITRATE [Concomitant]
     Active Substance: NITROGLYCERIN
     Dosage: 400 MCG, AS REQUIRED
     Route: 060

REACTIONS (3)
  - Pneumonia [Recovered/Resolved]
  - Infusion site discolouration [None]
  - Extravasation [Unknown]

NARRATIVE: CASE EVENT DATE: 20140819
